FAERS Safety Report 5999964-4 (Version None)
Quarter: 2008Q4

REPORT INFORMATION
  Report Type: 
  Country: None (occurrence: None)
  Receive Date: 20081215
  Receipt Date: 20081210
  Transmission Date: 20090506
  Serious: Yes (Death, Hospitalization, Other)
  Sender: FDA-Public Use
  Company Number: CH-BRISTOL-MYERS SQUIBB COMPANY-14439426

PATIENT
  Age: 65 Year
  Sex: Female

DRUGS (2)
  1. CHOLESTYRAMINE [Suspect]
     Indication: HYPERCHOLESTEROLAEMIA
  2. PHENPROCOUMON [Interacting]

REACTIONS (3)
  - AORTIC THROMBOSIS [None]
  - DRUG INTERACTION [None]
  - INTERNATIONAL NORMALISED RATIO DECREASED [None]
